FAERS Safety Report 8695810 (Version 2)
Quarter: 2013Q4

REPORT INFORMATION
  Report Type: Spontaneous
  Country: US (occurrence: US)
  Receive Date: 20120731
  Receipt Date: 20131105
  Transmission Date: 20140711
  Serious: Yes (Hospitalization)
  Sender: FDA-Public Use
  Company Number: US-009507513-1207USA010782

PATIENT
  Age: 56 Year
  Sex: Male

DRUGS (7)
  1. ZOCOR [Suspect]
     Dosage: 40 MG, UNK
     Route: 048
  2. PREDNISOLONE [Suspect]
     Dosage: 30 MG, UNK
     Route: 048
  3. FOLIC ACID [Concomitant]
     Dosage: 5 MG, QD
  4. OMEPRAZOLE [Concomitant]
     Dosage: 20 MG, QD
  5. ALBUTEROL [Concomitant]
     Dosage: 2 DF, PRN
  6. AMOXICILLIN [Concomitant]
     Dosage: 500 MG, TID
  7. CYANOCOBALAMIN [Concomitant]
     Dosage: 50 MICROGRAM, TID

REACTIONS (7)
  - Renal failure acute [Unknown]
  - Blood pressure increased [Unknown]
  - Hyperkalaemia [Unknown]
  - Rhabdomyolysis [Unknown]
  - Pain [Unknown]
  - Tachycardia [Unknown]
  - Anuria [Unknown]
